FAERS Safety Report 22625841 (Version 1)
Quarter: 2023Q2

REPORT INFORMATION
  Report Type: Spontaneous
  Country: US (occurrence: None)
  Receive Date: 20230620
  Receipt Date: 20230620
  Transmission Date: 20230722
  Serious: No
  Sender: FDA-Public Use
  Company Number: None

PATIENT
  Age: 27 Year
  Sex: Female
  Weight: 110.25 kg

DRUGS (5)
  1. WEGOVY [Suspect]
     Active Substance: SEMAGLUTIDE
     Indication: Polycystic ovaries
     Dates: start: 20230617
  2. COREG [Concomitant]
     Active Substance: CARVEDILOL
  3. omezoprole [Concomitant]
  4. LINZESS [Concomitant]
     Active Substance: LINACLOTIDE
  5. PEPCID AC [Concomitant]
     Active Substance: FAMOTIDINE

REACTIONS (7)
  - Dyspepsia [None]
  - Nausea [None]
  - Vomiting [None]
  - Eructation [None]
  - Insomnia [None]
  - Anxiety [None]
  - Poor quality sleep [None]

NARRATIVE: CASE EVENT DATE: 20230619
